FAERS Safety Report 9912973 (Version 1)
Quarter: 2014Q1

REPORT INFORMATION
  Report Type: Spontaneous
  Country: US (occurrence: None)
  Receive Date: 20140214
  Receipt Date: 20140214
  Transmission Date: 20141002
  Serious: Yes (Other)
  Sender: FDA-Public Use
  Company Number: FK201400473

PATIENT
  Age: 62 Year
  Sex: Male

DRUGS (6)
  1. FUROSEMIDE [Suspect]
     Indication: HYPERTENSION
  2. INDAPAMIDE (INDAPAMIDE) [Suspect]
     Indication: HYPERTENSION
     Route: 048
  3. AMLODIPINE (AMLODIPINE) [Concomitant]
  4. BISOPROLOL FUMARATE (BISOPROLOL FUMARATE) [Concomitant]
  5. LISINOPRIL (LISINOPRIL) [Concomitant]
  6. PARACETAMOL (PARACETAMOL) [Concomitant]

REACTIONS (5)
  - Hypertension [None]
  - Dizziness [None]
  - Drug interaction [None]
  - Malaise [None]
  - Labelled drug-drug interaction medication error [None]
